FAERS Safety Report 23315877 (Version 2)
Quarter: 2024Q1

REPORT INFORMATION
  Report Type: Report from Study
  Country: CN (occurrence: CN)
  Receive Date: 20231219
  Receipt Date: 20240117
  Transmission Date: 20240409
  Serious: No
  Sender: FDA-Public Use
  Company Number: CN-PFIZER INC-PV202300203055

PATIENT
  Age: 86 Year
  Sex: Female

DRUGS (72)
  1. NIRMATRELVIR\RITONAVIR [Suspect]
     Active Substance: NIRMATRELVIR\RITONAVIR
     Indication: COVID-19
     Dosage: UNK, 2X/DAY
     Route: 048
     Dates: start: 20220428, end: 20220508
  2. MOXIFLOXACIN HYDROCHLORIDE [Concomitant]
     Active Substance: MOXIFLOXACIN HYDROCHLORIDE\MOXIFLOXACIN HYDROCHLORIDE MONOHYDRATE
     Indication: Infection prophylaxis
     Dosage: UNK
     Route: 042
     Dates: start: 20220422, end: 20220422
  3. MOXIFLOXACIN HYDROCHLORIDE [Concomitant]
     Active Substance: MOXIFLOXACIN HYDROCHLORIDE\MOXIFLOXACIN HYDROCHLORIDE MONOHYDRATE
     Dosage: UNK
     Route: 042
     Dates: start: 20220422, end: 20220506
  4. MOXIFLOXACIN HYDROCHLORIDE [Concomitant]
     Active Substance: MOXIFLOXACIN HYDROCHLORIDE\MOXIFLOXACIN HYDROCHLORIDE MONOHYDRATE
     Dosage: UNK
     Route: 042
     Dates: start: 20220502, end: 20220502
  5. AMBROXOL HYDROCHLORIDE [Concomitant]
     Active Substance: AMBROXOL HYDROCHLORIDE
     Indication: Productive cough
     Dosage: UNK
     Route: 042
     Dates: start: 20220424, end: 20220424
  6. AMBROXOL HYDROCHLORIDE [Concomitant]
     Active Substance: AMBROXOL HYDROCHLORIDE
     Dosage: UNK
     Route: 042
     Dates: start: 20220424, end: 20220505
  7. AMBROXOL HYDROCHLORIDE [Concomitant]
     Active Substance: AMBROXOL HYDROCHLORIDE
     Dosage: UNK
     Route: 042
     Dates: start: 20220502, end: 20220502
  8. OMEPRAZOLE SODIUM [Concomitant]
     Active Substance: OMEPRAZOLE SODIUM
     Indication: Gastrointestinal disorder prophylaxis
     Dosage: UNK
     Route: 042
     Dates: start: 20220424, end: 20220424
  9. OMEPRAZOLE SODIUM [Concomitant]
     Active Substance: OMEPRAZOLE SODIUM
     Dosage: UNK
     Route: 042
     Dates: start: 20220424, end: 20220501
  10. CEFEPIME HYDROCHLORIDE [Concomitant]
     Active Substance: CEFEPIME HYDROCHLORIDE
     Indication: Infection prophylaxis
     Dosage: UNK
     Route: 042
     Dates: start: 20220426, end: 20220426
  11. CEFEPIME HYDROCHLORIDE [Concomitant]
     Active Substance: CEFEPIME HYDROCHLORIDE
     Dosage: UNK
     Route: 042
     Dates: start: 20220426, end: 20220502
  12. CEFEPIME HYDROCHLORIDE [Concomitant]
     Active Substance: CEFEPIME HYDROCHLORIDE
     Dosage: UNK
     Route: 042
     Dates: start: 20220429, end: 20220429
  13. CEFEPIME HYDROCHLORIDE [Concomitant]
     Active Substance: CEFEPIME HYDROCHLORIDE
     Dosage: UNK
     Route: 042
     Dates: start: 20220502, end: 20220502
  14. POTASSIUM CHLORIDE [Concomitant]
     Active Substance: POTASSIUM CHLORIDE
     Indication: Supplementation therapy
     Dosage: UNK
     Route: 042
     Dates: start: 20220426, end: 20220426
  15. POTASSIUM CHLORIDE [Concomitant]
     Active Substance: POTASSIUM CHLORIDE
     Indication: Hypokalaemia
     Dosage: UNK
     Route: 042
     Dates: start: 20220426, end: 20220502
  16. POTASSIUM CHLORIDE [Concomitant]
     Active Substance: POTASSIUM CHLORIDE
     Dosage: UNK
     Route: 042
     Dates: start: 20220502, end: 20220502
  17. VITAMIN C [Concomitant]
     Active Substance: ASCORBIC ACID
     Indication: Nutritional supplementation
     Dosage: UNK
     Route: 042
     Dates: start: 20220426, end: 20220426
  18. VITAMIN C [Concomitant]
     Active Substance: ASCORBIC ACID
     Dosage: UNK
     Route: 042
     Dates: start: 20220426, end: 20220502
  19. VITAMIN B6 [Concomitant]
     Active Substance: PYRIDOXINE HYDROCHLORIDE
     Indication: Nutritional supplementation
     Dosage: UNK
     Route: 042
     Dates: start: 20220426, end: 20220426
  20. VITAMIN B6 [Concomitant]
     Active Substance: PYRIDOXINE HYDROCHLORIDE
     Dosage: UNK
     Route: 042
     Dates: start: 20220426, end: 20220501
  21. ENTERAL NUTRITIONAL SUSPENSION (TPF) [Concomitant]
     Indication: Nutritional supplementation
     Dosage: UNK
     Route: 045
     Dates: start: 20220428, end: 20220501
  22. ENTERAL NUTRITIONAL SUSPENSION (TPF) [Concomitant]
     Dosage: UNK
     Route: 045
     Dates: start: 20220505, end: 20220505
  23. ENTERAL NUTRITIONAL SUSPENSION (TPF) [Concomitant]
     Dosage: UNK
     Route: 045
     Dates: start: 20220505, end: 20220508
  24. ENTERAL NUTRITIONAL SUSPENSION (TPF) [Concomitant]
     Dosage: UNK
     Route: 045
     Dates: start: 20220508, end: 20220509
  25. CLOPIDOGREL BISULFATE [Concomitant]
     Active Substance: CLOPIDOGREL BISULFATE
     Indication: Antiplatelet therapy
     Dosage: UNK
     Route: 048
     Dates: start: 20220429, end: 20220501
  26. AMLODIPINE BESYLATE [Concomitant]
     Active Substance: AMLODIPINE BESYLATE
     Indication: Cardiovascular disorder
     Dosage: UNK
     Route: 048
     Dates: start: 20220429, end: 20220502
  27. AMLODIPINE BESYLATE [Concomitant]
     Active Substance: AMLODIPINE BESYLATE
     Dosage: NASOGASTRIC
     Dates: start: 20220504, end: 20220509
  28. AMLODIPINE BESYLATE [Concomitant]
     Active Substance: AMLODIPINE BESYLATE
     Dosage: UNK
     Route: 048
     Dates: start: 20220502, end: 20220502
  29. HYDROCHLOROTHIAZIDE\IRBESARTAN [Concomitant]
     Active Substance: HYDROCHLOROTHIAZIDE\IRBESARTAN
     Indication: Cardiovascular disorder
     Dosage: UNK
     Route: 048
     Dates: start: 20220429, end: 20220502
  30. HYDROCHLOROTHIAZIDE\IRBESARTAN [Concomitant]
     Active Substance: HYDROCHLOROTHIAZIDE\IRBESARTAN
     Dosage: UNK
     Route: 048
     Dates: start: 20220502, end: 20220502
  31. TRANEXAMIC ACID [Concomitant]
     Active Substance: TRANEXAMIC ACID
     Indication: Haemostasis
     Dosage: UNK
     Route: 042
     Dates: start: 20220501, end: 20220502
  32. TRANEXAMIC ACID [Concomitant]
     Active Substance: TRANEXAMIC ACID
     Dosage: UNK
     Route: 042
     Dates: start: 20220501, end: 20220501
  33. NIFEDIPINE [Concomitant]
     Active Substance: NIFEDIPINE
     Indication: Cardiovascular disorder
     Dosage: UNK
     Route: 048
     Dates: start: 20220417, end: 20220417
  34. NIFEDIPINE [Concomitant]
     Active Substance: NIFEDIPINE
     Dosage: CONTROLLED-RELEASE
     Route: 048
     Dates: start: 20220502, end: 20220502
  35. NIFEDIPINE [Concomitant]
     Active Substance: NIFEDIPINE
     Dosage: CONTROLLED-RELEASE
     Route: 048
     Dates: start: 20220501, end: 20220504
  36. INSULIN HUMAN [Concomitant]
     Active Substance: INSULIN HUMAN
     Indication: Hypoglycaemia
     Dosage: UNK
     Route: 042
     Dates: start: 20220502, end: 20220508
  37. INSULIN HUMAN [Concomitant]
     Active Substance: INSULIN HUMAN
     Dosage: UNK
     Dates: start: 20220505, end: 20220505
  38. INSULIN HUMAN [Concomitant]
     Active Substance: INSULIN HUMAN
     Dosage: UNK
     Dates: start: 20220507, end: 20220507
  39. AMINO ACIDS NOS/FATS NOS/GLUCOSE [Concomitant]
     Indication: Nutritional supplementation
     Dosage: UNK
     Route: 042
     Dates: start: 20220502, end: 20220508
  40. VITAMINS [Concomitant]
     Active Substance: VITAMINS
     Indication: Nutritional supplementation
     Dosage: UNK
     Route: 042
     Dates: start: 20220502, end: 20220502
  41. VITAMINS [Concomitant]
     Active Substance: VITAMINS
     Dosage: UNK
     Route: 042
     Dates: start: 20220502, end: 20220508
  42. ALBUMIN HUMAN [Concomitant]
     Active Substance: ALBUMIN HUMAN
     Indication: Nutritional supplementation
     Dosage: UNK
     Route: 042
     Dates: start: 20220506, end: 20220509
  43. FUROSEMIDE [Concomitant]
     Active Substance: FUROSEMIDE
     Indication: Polyuria
     Dosage: UNK
     Route: 042
     Dates: start: 20220505, end: 20220505
  44. FUROSEMIDE [Concomitant]
     Active Substance: FUROSEMIDE
     Indication: Haemostasis
     Dosage: UNK
     Route: 042
     Dates: start: 20220506, end: 20220509
  45. SODIUM BICARBONATE [Concomitant]
     Active Substance: SODIUM BICARBONATE
     Indication: Blood pH
     Dosage: UNK
     Dates: start: 20220507, end: 202205
  46. SODIUM BICARBONATE [Concomitant]
     Active Substance: SODIUM BICARBONATE
     Dosage: UNK
     Dates: start: 20220507, end: 20220509
  47. SODIUM BICARBONATE [Concomitant]
     Active Substance: SODIUM BICARBONATE
     Indication: Blood pH
     Dosage: UNK
     Route: 042
     Dates: start: 20220423, end: 20220423
  48. SODIUM BICARBONATE [Concomitant]
     Active Substance: SODIUM BICARBONATE
     Dosage: UNK
     Route: 042
     Dates: start: 20220429, end: 20220429
  49. SODIUM BICARBONATE [Concomitant]
     Active Substance: SODIUM BICARBONATE
     Dosage: UNK
     Route: 042
     Dates: start: 20220502, end: 20220502
  50. SODIUM BICARBONATE [Concomitant]
     Active Substance: SODIUM BICARBONATE
     Dosage: UNK
     Route: 042
     Dates: start: 20220507, end: 20220507
  51. GLYCERIN [Concomitant]
     Active Substance: GLYCERIN
     Indication: Enema administration
     Dosage: UNK
     Route: 054
     Dates: start: 20220425, end: 20220425
  52. ERYTHROPOIETIN [Concomitant]
     Active Substance: ERYTHROPOIETIN
     Indication: Anaemia
     Dosage: UNK
     Route: 058
     Dates: start: 20220501, end: 20220501
  53. ERYTHROPOIETIN [Concomitant]
     Active Substance: ERYTHROPOIETIN
     Indication: Hypoglycaemia
     Dosage: UNK
     Route: 042
     Dates: start: 20220502, end: 20220502
  54. ERYTHROPOIETIN [Concomitant]
     Active Substance: ERYTHROPOIETIN
     Dosage: UNK
     Route: 045
     Dates: start: 20220506, end: 20220506
  55. ESOMEPRAZOLE SODIUM [Concomitant]
     Active Substance: ESOMEPRAZOLE SODIUM
     Indication: Gastrointestinal disorder prophylaxis
     Dosage: UNK
     Route: 042
     Dates: start: 20220501, end: 20220501
  56. ESOMEPRAZOLE SODIUM [Concomitant]
     Active Substance: ESOMEPRAZOLE SODIUM
     Dosage: UNK
     Route: 042
     Dates: start: 20220502, end: 20220502
  57. OCTREOTIDE ACETATE [Concomitant]
     Active Substance: OCTREOTIDE ACETATE
     Indication: Enzyme inhibition
     Dosage: UNK
     Route: 058
     Dates: start: 20220501, end: 20220501
  58. SOMATOSTATIN [Concomitant]
     Active Substance: SOMATOSTATIN
     Indication: Enzyme inhibition
     Dosage: UNK
     Route: 042
     Dates: start: 20220502, end: 20220502
  59. VITAMIN K1 [Concomitant]
     Active Substance: PHYTONADIONE
     Indication: Nutritional supplementation
     Dosage: UNK
     Route: 042
     Dates: start: 20220502, end: 20220502
  60. SODIUM POLYSTYRENE SULFONATE [Concomitant]
     Active Substance: SODIUM POLYSTYRENE SULFONATE
     Indication: Blood potassium increased
     Dosage: POWDER
     Route: 045
     Dates: start: 20220506, end: 20220506
  61. SODIUM POLYSTYRENE SULFONATE [Concomitant]
     Active Substance: SODIUM POLYSTYRENE SULFONATE
     Dosage: POWDER
     Route: 045
     Dates: start: 20220507, end: 20220507
  62. SODIUM POLYSTYRENE SULFONATE [Concomitant]
     Active Substance: SODIUM POLYSTYRENE SULFONATE
     Dosage: POWDER
     Route: 045
     Dates: start: 20220507, end: 20220508
  63. BRIMONIDINE [Concomitant]
     Active Substance: BRIMONIDINE TARTRATE
     Indication: Intraocular pressure test
     Dosage: UNK
     Route: 047
     Dates: start: 20220420, end: 202204
  64. CARTEOLOL [Concomitant]
     Active Substance: CARTEOLOL
     Indication: Intraocular pressure test
     Dosage: UNK
     Route: 047
     Dates: start: 20220420, end: 202204
  65. SHEN SHUAI NING [Concomitant]
     Indication: Prophylaxis
     Dosage: UNK
     Dates: start: 20220425, end: 20220502
  66. SHEN SHUAI NING [Concomitant]
     Dosage: UNK
     Dates: start: 20220502, end: 20220502
  67. SHEN SHUAI NING [Concomitant]
     Indication: Prophylaxis
     Dosage: UNK
     Dates: start: 20220428, end: 202204
  68. SHEN SHUAI NING [Concomitant]
     Dosage: UNK
     Route: 048
     Dates: start: 20220502, end: 20220502
  69. OXYGEN [Concomitant]
     Active Substance: OXYGEN
     Indication: Oxygen therapy
     Dosage: INHALATION
     Route: 055
     Dates: start: 20220429, end: 20220502
  70. OXYGEN [Concomitant]
     Active Substance: OXYGEN
     Indication: Hypoxia
     Dosage: INHALATION
     Route: 055
     Dates: start: 20220502, end: 20220505
  71. HERBALS\MENTHOL [Concomitant]
     Active Substance: HERBALS\MENTHOL
     Indication: Antiviral treatment
     Dosage: UNK
     Dates: start: 20220416, end: 202204
  72. HERBALS\MENTHOL [Concomitant]
     Active Substance: HERBALS\MENTHOL
     Dosage: UNK
     Route: 048
     Dates: start: 20220423, end: 202204

REACTIONS (1)
  - Overdose [Unknown]
